FAERS Safety Report 11865693 (Version 2)
Quarter: 2016Q1

REPORT INFORMATION
  Report Type: Spontaneous
  Country: US (occurrence: US)
  Receive Date: 20151223
  Receipt Date: 20160127
  Transmission Date: 20160526
  Serious: Yes (Life-Threatening, Hospitalization)
  Sender: FDA-Public Use
  Company Number: US-ASTRAZENECA-2015SF28077

PATIENT
  Age: 68 Year
  Sex: Male

DRUGS (5)
  1. VICTOZA [Concomitant]
     Active Substance: LIRAGLUTIDE
  2. METFORMIN [Concomitant]
     Active Substance: METFORMIN HYDROCHLORIDE
  3. GLIPIZIDE. [Concomitant]
     Active Substance: GLIPIZIDE
  4. FARXIGA [Suspect]
     Active Substance: DAPAGLIFLOZIN PROPANEDIOL
     Indication: TYPE 2 DIABETES MELLITUS
     Route: 048
     Dates: start: 20141020
  5. FARXIGA [Suspect]
     Active Substance: DAPAGLIFLOZIN PROPANEDIOL
     Indication: TYPE 2 DIABETES MELLITUS
     Route: 048

REACTIONS (12)
  - Hepatic enzyme increased [Unknown]
  - Acute kidney injury [Unknown]
  - Respiratory failure [Recovered/Resolved with Sequelae]
  - Sepsis [Unknown]
  - Hypertension [Unknown]
  - Acidosis [Not Recovered/Not Resolved]
  - Seizure [Unknown]
  - Pyrexia [Unknown]
  - Diabetic ketoacidosis [Not Recovered/Not Resolved]
  - Pneumonia [Unknown]
  - Leukocytosis [Unknown]
  - Blood creatinine increased [Unknown]

NARRATIVE: CASE EVENT DATE: 20151211
